FAERS Safety Report 5357217-1 (Version None)
Quarter: 2007Q2

REPORT INFORMATION
  Report Type: 
  Country: None (occurrence: None)
  Receive Date: 20070612
  Receipt Date: 20070612
  Transmission Date: 20071010
  Serious: Yes (Life-Threatening, Hospitalization, Other)
  Sender: FDA-Public Use
  Company Number: None

PATIENT
  Age: 53 Year
  Sex: Male
  Weight: 81.1939 kg

DRUGS (4)
  1. HYDROMORPHONE HCL [Suspect]
     Indication: GOUT
     Dosage: 2 MG IV BOLUS
     Route: 040
     Dates: start: 20070611, end: 20070611
  2. HYDROMORPHONE HCL [Suspect]
     Indication: PAIN MANAGEMENT
     Dosage: 2 MG IV BOLUS
     Route: 040
     Dates: start: 20070611, end: 20070611
  3. KETOROLAC TROMETHAMINE [Suspect]
     Indication: GOUT
     Dosage: 30 MG IV BOLUS
     Route: 040
     Dates: start: 20070611, end: 20070611
  4. KETOROLAC TROMETHAMINE [Suspect]
     Indication: PAIN MANAGEMENT
     Dosage: 30 MG IV BOLUS
     Route: 040
     Dates: start: 20070611, end: 20070611

REACTIONS (1)
  - ACUTE PULMONARY OEDEMA [None]
